FAERS Safety Report 9701466 (Version 3)
Quarter: 2013Q4

REPORT INFORMATION
  Report Type: Report from Study
  Country: UA (occurrence: UA)
  Receive Date: 20131121
  Receipt Date: 20131128
  Transmission Date: 20140711
  Serious: Yes (Death)
  Sender: FDA-Public Use
  Company Number: UA-ASTRAZENECA-2013SE85099

PATIENT
  Age: 30173 Day
  Sex: Female

DRUGS (18)
  1. ARIMIDEX [Suspect]
     Indication: BREAST CANCER METASTATIC
     Route: 048
     Dates: start: 20130613
  2. PLACEBO [Suspect]
     Indication: BREAST CANCER METASTATIC
     Dosage: EVERY FOUR WEEKS
     Route: 030
     Dates: start: 20130613
  3. PLACEBO [Suspect]
     Indication: BREAST CANCER METASTATIC
     Dosage: EVERY FOUR WEEKS
     Route: 030
     Dates: start: 20130626
  4. PLACEBO [Suspect]
     Indication: BREAST CANCER METASTATIC
     Dosage: EVERY FOUR WEEKS
     Route: 030
     Dates: start: 20130711
  5. PLACEBO [Suspect]
     Indication: BREAST CANCER METASTATIC
     Dosage: EVERY FOUR WEEKS
     Route: 030
     Dates: start: 20130809
  6. PLACEBO [Suspect]
     Indication: BREAST CANCER METASTATIC
     Dosage: EVERY FOUR WEEKS
     Route: 030
     Dates: start: 20130905
  7. PLACEBO [Suspect]
     Indication: BREAST CANCER METASTATIC
     Dosage: EVERY FOUR WEEKS
     Route: 030
     Dates: start: 20131003
  8. PLACEBO [Suspect]
     Indication: BREAST CANCER METASTATIC
     Dosage: EVERY FOUR WEEKS
     Route: 030
     Dates: start: 20131104
  9. LISINOPRIL [Concomitant]
     Indication: MYOCARDIAL ISCHAEMIA
     Route: 048
  10. LISINOPRIL [Concomitant]
     Indication: MYOCARDIAL FIBROSIS
     Route: 048
  11. LISINOPRIL [Concomitant]
     Indication: CARDIAC FAILURE
     Route: 048
  12. LISINOPRIL [Concomitant]
     Indication: ESSENTIAL HYPERTENSION
     Route: 048
  13. BARBOVAL [Concomitant]
     Indication: MYOCARDIAL ISCHAEMIA
     Route: 048
  14. BARBOVAL [Concomitant]
     Indication: MYOCARDIAL FIBROSIS
     Route: 048
  15. BARBOVAL [Concomitant]
     Indication: CARDIAC FAILURE
     Route: 048
  16. BARBOVAL [Concomitant]
     Indication: ESSENTIAL HYPERTENSION
     Route: 048
  17. DROTAVERINE [Concomitant]
     Indication: PAIN
     Route: 048
     Dates: start: 201302
  18. PICOLAX [Concomitant]
     Indication: CONSTIPATION
     Route: 048

REACTIONS (1)
  - Cardiac failure acute [Fatal]
